FAERS Safety Report 25749779 (Version 1)
Quarter: 2025Q3

REPORT INFORMATION
  Report Type: Spontaneous
  Country: EU (occurrence: EU)
  Receive Date: 20250902
  Receipt Date: 20250902
  Transmission Date: 20251020
  Serious: Yes (Death, Hospitalization, Other)
  Sender: BIOLOGICAL E. LIMITED
  Company Number: EU-BELUSA-2025BELLIT0047

PATIENT

DRUGS (1)
  1. ENOXAPARIN SODIUM [Suspect]
     Active Substance: ENOXAPARIN SODIUM
     Indication: Anticoagulant therapy

REACTIONS (3)
  - Shock haemorrhagic [Fatal]
  - Oesophageal hypomotility [Unknown]
  - Haematoma muscle [Not Recovered/Not Resolved]
